FAERS Safety Report 14842870 (Version 1)
Quarter: 2018Q2

REPORT INFORMATION
  Report Type: Spontaneous
  Country: US (occurrence: US)
  Receive Date: 20180503
  Receipt Date: 20180503
  Transmission Date: 20180711
  Serious: No
  Sender: FDA-Public Use
  Company Number: ALCN2014US004922

PATIENT
  Age: 84 Year
  Sex: Female

DRUGS (1)
  1. ICAPS MV [Suspect]
     Active Substance: MINERALS\VITAMINS
     Indication: MACULAR DEGENERATION
     Dosage: 2 DF, BID
     Route: 048
     Dates: start: 201408

REACTIONS (1)
  - Lip dry [Recovered/Resolved]

NARRATIVE: CASE EVENT DATE: 201408
